FAERS Safety Report 5090379-2 (Version None)
Quarter: 2006Q3

REPORT INFORMATION
  Report Type: 
  Country: None (occurrence: None)
  Receive Date: 20060823
  Receipt Date: 20060814
  Transmission Date: 20061208
  Serious: Yes (Hospitalization, Other)
  Sender: FDA-Public Use
  Company Number: SU-2006-005296

PATIENT
  Age: 59 Year
  Sex: Male
  Weight: 75 kg

DRUGS (2)
  1. BENICAR HCT [Suspect]
     Indication: BLOOD PRESSURE
     Dosage: 40.25 MG QD PO
     Route: 048
     Dates: start: 20060715, end: 20060718
  2. TETANUS IMMUNIZATION [Concomitant]

REACTIONS (8)
  - ALCOHOL WITHDRAWAL SYNDROME [None]
  - BLOOD CREATININE INCREASED [None]
  - BLOOD GLUCOSE INCREASED [None]
  - BLOOD URINE PRESENT [None]
  - DIZZINESS [None]
  - PULSE ABSENT [None]
  - RESPIRATORY ARREST [None]
  - SYNCOPE [None]
